FAERS Safety Report 10648713 (Version 1)
Quarter: 2014Q4

REPORT INFORMATION
  Report Type: Spontaneous
  Country: US (occurrence: None)
  Receive Date: 20141205
  Receipt Date: 20141205
  Transmission Date: 20150529
  Serious: No
  Sender: FDA-Public Use
  Company Number: USA-2014094581

PATIENT
  Age: 76 Year
  Sex: Male
  Weight: 77.1 kg

DRUGS (1)
  1. POMALYST [Suspect]
     Active Substance: POMALIDOMIDE
     Indication: PLASMA CELL MYELOMA
     Dosage: 3 MG, 1, PO
     Route: 048
     Dates: start: 20140828

REACTIONS (1)
  - Miliaria [None]

NARRATIVE: CASE EVENT DATE: 20140829
